FAERS Safety Report 19068701 (Version 2)
Quarter: 2021Q3

REPORT INFORMATION
  Report Type: Spontaneous
  Country: GB (occurrence: GB)
  Receive Date: 20210329
  Receipt Date: 20210719
  Transmission Date: 20211014
  Serious: Yes (Hospitalization, Other)
  Sender: FDA-Public Use
  Company Number: GB-MYLANLABS-2021M1018052

PATIENT
  Age: 62 Year
  Sex: Male

DRUGS (1)
  1. CLOZARIL [Suspect]
     Active Substance: CLOZAPINE
     Indication: SCHIZOPHRENIA
     Dosage: UNK
     Route: 048
     Dates: start: 20210309, end: 202103

REACTIONS (3)
  - Neuroleptic malignant syndrome [Recovered/Resolved]
  - Posterior reversible encephalopathy syndrome [Unknown]
  - Hypotension [Unknown]

NARRATIVE: CASE EVENT DATE: 20210317
